FAERS Safety Report 7686108-6 (Version None)
Quarter: 2011Q3

REPORT INFORMATION
  Report Type: 
  Country: None (occurrence: None)
  Receive Date: 20110816
  Receipt Date: 20110805
  Transmission Date: 20111222
  Serious: Yes (Hospitalization, Disabling)
  Sender: FDA-Public Use
  Company Number: PHHY2011US69299

PATIENT
  Sex: Female
  Weight: 49 kg

DRUGS (4)
  1. FEMARA [Suspect]
     Indication: BREAST CANCER
     Dosage: 2.5 MG, QD
     Route: 048
     Dates: start: 20101111, end: 20110701
  2. ASPIRIN [Concomitant]
     Dosage: 81 MG, DAILY
     Route: 048
  3. MIRTAZAPINE [Concomitant]
     Indication: DEPRESSION
     Dosage: 15 MG, UNK
  4. MEGACE [Concomitant]
     Dosage: 400 MG, DAILY

REACTIONS (7)
  - CONFUSIONAL STATE [None]
  - ASTHENIA [None]
  - APHASIA [None]
  - BALANCE DISORDER [None]
  - ENCEPHALITIS [None]
  - WEIGHT DECREASED [None]
  - SENSATION OF HEAVINESS [None]
